FAERS Safety Report 16296642 (Version 1)
Quarter: 2019Q2

REPORT INFORMATION
  Report Type: Report from Study
  Country: SV (occurrence: SV)
  Receive Date: 20190510
  Receipt Date: 20190510
  Transmission Date: 20190711
  Serious: Yes (Death, Hospitalization)
  Sender: FDA-Public Use
  Company Number: SV-BAYER-2019-065394

PATIENT
  Age: 62 Year
  Sex: Female

DRUGS (2)
  1. NEXAVAR [Suspect]
     Active Substance: SORAFENIB
     Indication: HEPATOCELLULAR CARCINOMA
     Dosage: 400 MG, QD
     Route: 048
     Dates: start: 20190312
  2. TRAMADOL. [Concomitant]
     Active Substance: TRAMADOL
     Indication: PAIN
     Dosage: UNK

REACTIONS (5)
  - Abdominal pain [Recovered/Resolved with Sequelae]
  - Off label use [None]
  - Inflammation [Recovered/Resolved with Sequelae]
  - Metastases to abdominal cavity [Fatal]
  - Back pain [Recovered/Resolved with Sequelae]

NARRATIVE: CASE EVENT DATE: 20190322
